FAERS Safety Report 13414687 (Version 3)
Quarter: 2017Q2

REPORT INFORMATION
  Report Type: Spontaneous
  Country: DE (occurrence: DE)
  Receive Date: 20170406
  Receipt Date: 20170515
  Transmission Date: 20170830
  Serious: Yes (Life-Threatening)
  Sender: FDA-Public Use
  Company Number: DE-TEVA-754652GER

PATIENT
  Age: 46 Year
  Sex: Male
  Weight: 82 kg

DRUGS (5)
  1. HEPARIN-NATRIUM-25 000-RATIOPHARM [Suspect]
     Active Substance: HEPARIN SODIUM
     Dosage: AT 13:35; IN HLM (HEART LUNG MACHINE)
     Dates: start: 20170208
  2. HEPARIN-NATRIUM-25 000-RATIOPHARM [Suspect]
     Active Substance: HEPARIN SODIUM
     Dosage: AT 13:12; IN HLM (HEART LUNG MACHINE)
     Dates: start: 20170208
  3. HEPARIN-NATRIUM-25 000-RATIOPHARM [Suspect]
     Active Substance: HEPARIN SODIUM
     Dosage: AT 13:20; IN HLM (HEART LUNG MACHINE)
     Dates: start: 20170208
  4. HEPARIN-NATRIUM-25 000-RATIOPHARM [Suspect]
     Active Substance: HEPARIN SODIUM
     Dosage: AT 13:05
     Route: 042
     Dates: start: 20170208
  5. HEPARIN-NATRIUM-25 000-RATIOPHARM [Suspect]
     Active Substance: HEPARIN SODIUM
     Dosage: AT 13:10; IN HLM (HEART LUNG MACHINE)
     Dates: start: 20170208

REACTIONS (2)
  - Drug effect incomplete [Unknown]
  - Coagulation time shortened [Recovered/Resolved]

NARRATIVE: CASE EVENT DATE: 20170208
